FAERS Safety Report 7671020-9 (Version None)
Quarter: 2011Q3

REPORT INFORMATION
  Report Type: 
  Country: None (occurrence: None)
  Receive Date: 20110809
  Receipt Date: 20110725
  Transmission Date: 20111222
  Serious: Yes (Hospitalization, Congenital Anomaly, Other)
  Sender: FDA-Public Use
  Company Number: US-UCBSA-024002

PATIENT
  Sex: Male

DRUGS (3)
  1. KEPPRA [Suspect]
     Indication: COMPLEX PARTIAL SEIZURES
     Route: 064
     Dates: start: 20090101, end: 20100506
  2. EFFEXOR [Concomitant]
     Indication: POSTPARTUM DEPRESSION
     Route: 064
     Dates: end: 20100506
  3. PRENATAL VITAMINS [Concomitant]
     Route: 064
     Dates: end: 20100506

REACTIONS (11)
  - MATERNAL EXPOSURE DURING PREGNANCY [None]
  - CLEFT PALATE [None]
  - SPEECH DISORDER DEVELOPMENTAL [None]
  - OTITIS MEDIA [None]
  - FAILURE TO THRIVE [None]
  - PREMATURE BABY [None]
  - DELAYED FONTANELLE CLOSURE [None]
  - HEAD BANGING [None]
  - VELO-CARDIO-FACIAL SYNDROME [None]
  - CARDIAC MURMUR [None]
  - MACROCEPHALY [None]
